FAERS Safety Report 5905847-8 (Version None)
Quarter: 2008Q4

REPORT INFORMATION
  Report Type: 
  Country: None (occurrence: None)
  Receive Date: 20081002
  Receipt Date: 20080924
  Transmission Date: 20090506
  Serious: Yes (Hospitalization, Other)
  Sender: FDA-Public Use
  Company Number: BR-ABBOTT-08P-020-0478465-00

PATIENT
  Sex: Male

DRUGS (2)
  1. HUMIRA [Suspect]
     Indication: CROHN'S DISEASE
     Route: 058
     Dates: start: 20080801, end: 20080801
  2. HUMIRA [Suspect]
     Dates: start: 20080501, end: 20080501

REACTIONS (6)
  - ABDOMINAL PAIN [None]
  - ANAEMIA [None]
  - CROHN'S DISEASE [None]
  - HAEMATOLOGY TEST ABNORMAL [None]
  - INFECTION [None]
  - WEIGHT DECREASED [None]
